FAERS Safety Report 10062255 (Version 5)
Quarter: 2014Q2

REPORT INFORMATION
  Report Type: Spontaneous
  Country: TR (occurrence: TR)
  Receive Date: 20140407
  Receipt Date: 20140508
  Transmission Date: 20141212
  Serious: Yes (Other)
  Sender: FDA-Public Use
  Company Number: TR-VERTEX PHARMACEUTICALS INC-2013-003285

PATIENT
  Age: 65 Year
  Sex: Male

DRUGS (10)
  1. INCIVO [Suspect]
     Route: 048
     Dates: start: 20130301
  2. INCIVO [Suspect]
     Indication: CHRONIC HEPATITIS C
  3. INCIVO [Suspect]
     Indication: HEPATITIS C
  4. PEGINTERFERON ALFA [Suspect]
     Indication: CHRONIC HEPATITIS C
     Dosage: DOSAGE FORM: UNKNOWN
     Route: 065
     Dates: start: 20130301
  5. RIBAVIRIN [Suspect]
     Indication: CHRONIC HEPATITIS C
     Dosage: DOSAGE FORM: UNKNOWN
     Route: 065
     Dates: start: 20130301
  6. METOPROLOL [Concomitant]
     Indication: ARRHYTHMIA
     Dates: start: 1993
  7. ACETYLSALICYLIC ACID [Concomitant]
     Indication: ARRHYTHMIA
     Dates: start: 1993
  8. LOSARTAN [Concomitant]
     Indication: HYPERTENSION
     Dates: start: 2003
  9. HYDROCHLOROTHIAZIDE [Concomitant]
     Indication: HYPERTENSION
     Dates: start: 2003
  10. METFORMIN [Concomitant]
     Indication: DIABETES MELLITUS
     Dates: start: 2011

REACTIONS (13)
  - Blood glucose increased [Unknown]
  - Hepatitis C [Unknown]
  - Excoriation [Recovered/Resolved]
  - International normalised ratio increased [Unknown]
  - Pain [Recovered/Resolved]
  - Blood potassium decreased [Unknown]
  - Blood uric acid increased [Unknown]
  - Dermatitis bullous [Recovered/Resolved]
  - Erythema [Recovered/Resolved]
  - Skin exfoliation [Recovered/Resolved]
  - Rash erythematous [Recovered/Resolved]
  - Rash [Recovered/Resolved]
  - Skin exfoliation [Recovered/Resolved]
